FAERS Safety Report 25339719 (Version 2)
Quarter: 2025Q2

REPORT INFORMATION
  Report Type: Spontaneous
  Country: US (occurrence: US)
  Receive Date: 20250521
  Receipt Date: 20250602
  Transmission Date: 20250717
  Serious: No
  Sender: DR REDDYS
  Company Number: US-DRL-USA-USA/2025/05/006896

PATIENT
  Sex: Female

DRUGS (1)
  1. LANSOPRAZOLE [Suspect]
     Active Substance: LANSOPRAZOLE
     Indication: Product used for unknown indication
     Dosage: SWALLOW 1 CAPSULE WITH A GLASS OF WATER BEFORE EATING IN THE MORNING, TAKE EVERY DAY FOR 14 DAYS, DO
     Route: 048

REACTIONS (1)
  - Product dose omission issue [Unknown]
